FAERS Safety Report 10048309 (Version 2)
Quarter: 2014Q2

REPORT INFORMATION
  Report Type: Spontaneous
  Country: US (occurrence: US)
  Receive Date: 20140331
  Receipt Date: 20140415
  Transmission Date: 20141212
  Serious: Yes (Hospitalization)
  Sender: FDA-Public Use
  Company Number: US-GLAXOSMITHKLINE-A1065866A

PATIENT
  Sex: Female

DRUGS (2)
  1. AVANDIA [Suspect]
     Indication: CARDIAC DISORDER
     Route: 048
  2. UNKNOWN [Concomitant]

REACTIONS (4)
  - Myocardial infarction [Recovering/Resolving]
  - Coronary artery bypass [Recovering/Resolving]
  - Disability [Not Recovered/Not Resolved]
  - Coronary artery occlusion [Recovering/Resolving]
